FAERS Safety Report 12265838 (Version 2)
Quarter: 2016Q2

REPORT INFORMATION
  Report Type: Spontaneous
  Country: US (occurrence: US)
  Receive Date: 20160413
  Receipt Date: 20160610
  Transmission Date: 20160815
  Serious: Yes (Death, Life-Threatening, Hospitalization)
  Sender: FDA-Public Use
  Company Number: US-SA-2016SA071141

PATIENT
  Age: 46 Year
  Sex: Male

DRUGS (15)
  1. FLUOCINONIDE. [Concomitant]
     Active Substance: FLUOCINONIDE
  2. TESTOSTERONE CYPIONATE. [Concomitant]
     Active Substance: TESTOSTERONE CYPIONATE
  3. PREDNISONE. [Concomitant]
     Active Substance: PREDNISONE
  4. CEFUROXIME. [Concomitant]
     Active Substance: CEFUROXIME
  5. GENERLAC [Concomitant]
     Active Substance: LACTULOSE
  6. AUBAGIO [Suspect]
     Active Substance: TERIFLUNOMIDE
     Indication: MULTIPLE SCLEROSIS
     Route: 048
     Dates: start: 20150603, end: 20160406
  7. NAPROXEN. [Concomitant]
     Active Substance: NAPROXEN
  8. HYDROCORTISONE. [Concomitant]
     Active Substance: HYDROCORTISONE
  9. ANDRODERM [Concomitant]
     Active Substance: TESTOSTERONE
  10. DIPHENHYDRAMINE. [Concomitant]
     Active Substance: DIPHENHYDRAMINE
  11. BACLOFEN. [Concomitant]
     Active Substance: BACLOFEN
  12. HYDROXYZINE [Concomitant]
     Active Substance: HYDROXYZINE\HYDROXYZINE HYDROCHLORIDE
  13. LEVETIRACETAM. [Concomitant]
     Active Substance: LEVETIRACETAM
  14. GILENYA [Concomitant]
     Active Substance: FINGOLIMOD HYDROCHLORIDE
  15. LEVOFLOXACIN. [Concomitant]
     Active Substance: LEVOFLOXACIN

REACTIONS (4)
  - Death [Fatal]
  - Rash [Unknown]
  - Anaphylactic reaction [Unknown]
  - Urticaria [Unknown]

NARRATIVE: CASE EVENT DATE: 201603
